FAERS Safety Report 26218587 (Version 1)
Quarter: 2025Q4

REPORT INFORMATION
  Report Type: Spontaneous
  Country: JP (occurrence: JP)
  Receive Date: 20251231
  Receipt Date: 20251231
  Transmission Date: 20260117
  Serious: Yes (Other)
  Sender: ALEXION PHARMACEUTICALS
  Company Number: JP-ASTRAZENECA-202512GLO023058JP

PATIENT
  Age: 57 Year
  Sex: Female

DRUGS (3)
  1. VOYDEYA [Suspect]
     Active Substance: DANICOPAN
     Indication: Paroxysmal nocturnal haemoglobinuria
     Dosage: 150 MILLIGRAM, TID
     Route: 065
     Dates: start: 202406, end: 202412
  2. VOYDEYA [Suspect]
     Active Substance: DANICOPAN
     Dosage: 200 MILLIGRAM
     Route: 065
  3. ULTOMIRIS [Suspect]
     Active Substance: RAVULIZUMAB-CWVZ
     Indication: Paroxysmal nocturnal haemoglobinuria
     Dosage: UNK
     Route: 065

REACTIONS (2)
  - Cholecystitis [Unknown]
  - Breakthrough haemolysis [Unknown]
